FAERS Safety Report 8170204-3 (Version None)
Quarter: 2012Q1

REPORT INFORMATION
  Report Type: 
  Country: None (occurrence: None)
  Receive Date: 20120228
  Receipt Date: 20120215
  Transmission Date: 20120608
  Serious: Yes (Death, Hospitalization)
  Sender: FDA-Public Use
  Company Number: PHHY2012BE015855

PATIENT
  Age: 71 Year
  Sex: Male

DRUGS (2)
  1. EVEROLIMUS [Suspect]
     Indication: HEART TRANSPLANT
     Dosage: UNK UKN, UNK
  2. METHYLPREDNISOLONE [Concomitant]
     Dosage: 120 MG, UNK

REACTIONS (13)
  - HAEMOPTYSIS [None]
  - LUNG HYPERINFLATION [None]
  - LUNG CONSOLIDATION [None]
  - PULMONARY TOXICITY [None]
  - CREPITATIONS [None]
  - DYSPNOEA [None]
  - HYPOXIA [None]
  - TOXICITY TO VARIOUS AGENTS [None]
  - COUGH [None]
  - LUNG INFILTRATION [None]
  - PULMONARY HYPERTENSION [None]
  - PULMONARY ALVEOLAR HAEMORRHAGE [None]
  - BRONCHITIS [None]
